FAERS Safety Report 6922987-5 (Version None)
Quarter: 2010Q3

REPORT INFORMATION
  Report Type: 
  Country: None (occurrence: None)
  Receive Date: 20100813
  Receipt Date: 20100804
  Transmission Date: 20110219
  Serious: Yes (Life-Threatening)
  Sender: FDA-Public Use
  Company Number: GB-PFIZER INC-2010098311

PATIENT
  Age: 29 Year
  Sex: Female

DRUGS (2)
  1. CLINDAMYCIN HCL [Suspect]
     Indication: INFECTION PROPHYLAXIS
     Dosage: 600 MG, UNK
     Route: 042
     Dates: start: 20100713, end: 20100713
  2. BUPIVACAINE [Concomitant]
     Route: 037

REACTIONS (1)
  - ANAPHYLACTIC SHOCK [None]
